FAERS Safety Report 5035867-X (Version None)
Quarter: 2006Q2

REPORT INFORMATION
  Report Type: 
  Country: None (occurrence: None)
  Receive Date: 20060526
  Receipt Date: 20060210
  Transmission Date: 20061013
  Serious: Yes (Other)
  Sender: FDA-Public Use
  Company Number: WAES 0602USA02668

PATIENT
  Age: 63 Year
  Sex: Female

DRUGS (10)
  1. VYTORIN [Suspect]
     Indication: BLOOD CHOLESTEROL INCREASED
     Dosage: PO
     Route: 048
  2. AMPICILLIN [Concomitant]
  3. CEFAZOLIN SODIUM [Concomitant]
  4. CEFUROXIME [Concomitant]
  5. CEPHALOTHIN SODIUM [Concomitant]
  6. CIPROFLOXACIN [Concomitant]
  7. GENTAMICIN [Concomitant]
  8. NITROFURANTOIN [Concomitant]
  9. SULFAMETHOXAZOLE + TRIMETHOPRIM [Concomitant]
  10. TETRACYCLINE [Concomitant]

REACTIONS (1)
  - RHABDOMYOLYSIS [None]
